FAERS Safety Report 7251190-7 (Version None)
Quarter: 2011Q1

REPORT INFORMATION
  Report Type: 
  Country: None (occurrence: None)
  Receive Date: 20110128
  Receipt Date: 20110117
  Transmission Date: 20110831
  Serious: Yes (Other)
  Sender: FDA-Public Use
  Company Number: US-BAYER-2011-006320

PATIENT
  Sex: Male
  Weight: 91 kg

DRUGS (3)
  1. ALKA-SELTZER PLUS FLU [Suspect]
     Indication: FEELING COLD
     Dosage: 2 DF, UNK
     Route: 048
     Dates: start: 20110117, end: 20110117
  2. DIURETICS [Concomitant]
     Dosage: UNK
  3. CHOLESTEROL [Concomitant]
     Dosage: UNK

REACTIONS (5)
  - DYSPNOEA [None]
  - PHARYNGEAL OEDEMA [None]
  - URINE ABNORMALITY [None]
  - OROPHARYNGEAL PAIN [None]
  - THROAT TIGHTNESS [None]
